FAERS Safety Report 19892674 (Version 1)
Quarter: 2021Q3

REPORT INFORMATION
  Report Type: Spontaneous
  Country: US (occurrence: US)
  Receive Date: 20210928
  Receipt Date: 20210928
  Transmission Date: 20211014
  Serious: Yes (Death, Hospitalization, Other)
  Sender: FDA-Public Use
  Company Number: US-ASTELLAS-2021US036170

PATIENT
  Age: 78 Year
  Sex: Male

DRUGS (2)
  1. PADCEV [Suspect]
     Active Substance: ENFORTUMAB VEDOTIN-EJFV
     Dosage: 1.25 MG/KG, UNKNOWN FREQ.(DAY 8)
     Route: 065
     Dates: start: 20210909, end: 20210909
  2. PADCEV [Suspect]
     Active Substance: ENFORTUMAB VEDOTIN-EJFV
     Indication: TRANSITIONAL CELL CARCINOMA
     Dosage: 1.25 MG/KG, UNKNOWN FREQ.(DAY 1)
     Route: 065
     Dates: start: 20210902, end: 20210902

REACTIONS (10)
  - Diabetic ketoacidosis [Unknown]
  - Bilirubin conjugated abnormal [Unknown]
  - Blood bilirubin abnormal [Unknown]
  - Incarcerated hernia [Fatal]
  - Rash [Unknown]
  - Dysphagia [Unknown]
  - Alanine aminotransferase abnormal [Unknown]
  - Aspartate aminotransferase abnormal [Unknown]
  - Blood creatinine increased [Unknown]
  - Liver disorder [Unknown]
